FAERS Safety Report 8813980 (Version 3)
Quarter: 2012Q4

REPORT INFORMATION
  Report Type: 
  Country: JP (occurrence: JP)
  Receive Date: 20120928
  Receipt Date: 20121113
  Transmission Date: 20130627
  Serious: Yes (Hospitalization)
  Sender: FDA-Public Use
  Company Number: JP-ELI_LILLY_AND_COMPANY-JP201209005559

PATIENT
  Age: 60 Year
  Sex: Male
  Weight: 71.7 kg

DRUGS (12)
  1. ALIMTA [Suspect]
     Indication: LARGE CELL CARCINOMA OF THE RESPIRATORY TRACT STAGE UNSPECIFIED
     Dosage: 950 mg, UNK
     Route: 042
     Dates: start: 20120911, end: 20120911
  2. RANDA [Concomitant]
     Indication: LARGE CELL CARCINOMA OF THE RESPIRATORY TRACT STAGE UNSPECIFIED
     Dosage: 140 mg, UNK
     Route: 065
     Dates: start: 20120911, end: 20120911
  3. AVASTIN [Concomitant]
     Indication: LARGE CELL CARCINOMA OF THE RESPIRATORY TRACT STAGE UNSPECIFIED
     Dosage: 1050 mg, UNK
     Route: 065
     Dates: start: 20120911, end: 20120911
  4. EMEND [Concomitant]
     Indication: PROPHYLAXIS
     Dosage: UNK
     Route: 048
     Dates: start: 20120911, end: 20120911
  5. EMEND [Concomitant]
     Dosage: UNK
     Route: 048
     Dates: start: 20120912, end: 20120913
  6. ALOXI [Concomitant]
     Indication: PROPHYLAXIS
     Dosage: UNK
     Dates: start: 20120911, end: 20120911
  7. DEXART [Concomitant]
     Indication: PROPHYLAXIS
     Dosage: UNK
     Dates: start: 20120911, end: 20120911
  8. DEXART [Concomitant]
     Dosage: UNK
     Dates: start: 20120912, end: 20120913
  9. PANVITAN                           /00466101/ [Concomitant]
     Indication: PROPHYLAXIS
     Dosage: UNK
     Dates: start: 20120907
  10. LOXONIN                            /00890702/ [Concomitant]
     Indication: PAIN
     Dosage: UNK
  11. MUCOSTA [Concomitant]
     Indication: PAIN
     Dosage: UNK DF, UNK
  12. VITAMIN B12 [Concomitant]
     Dosage: UNK
     Route: 030
     Dates: start: 20120907

REACTIONS (2)
  - Liver disorder [Recovered/Resolved]
  - Blood creatinine increased [Not Recovered/Not Resolved]
